FAERS Safety Report 13730611 (Version 2)
Quarter: 2017Q3

REPORT INFORMATION
  Report Type: Spontaneous
  Country: US (occurrence: US)
  Receive Date: 20170707
  Receipt Date: 20170922
  Transmission Date: 20171127
  Serious: Yes (Other)
  Sender: FDA-Public Use
  Company Number: US-JNJFOC-20170415684

PATIENT
  Age: 77 Year
  Sex: Male
  Weight: 107.96 kg

DRUGS (3)
  1. XARELTO [Suspect]
     Active Substance: RIVAROXABAN
     Indication: THROMBOSIS PROPHYLAXIS
     Dosage: 10 MG AND 15 MG
     Route: 048
     Dates: start: 20140422, end: 20170327
  2. XARELTO [Suspect]
     Active Substance: RIVAROXABAN
     Indication: ATRIAL FIBRILLATION
     Dosage: 10 MG AND 15 MG
     Route: 048
     Dates: start: 20140422, end: 20170327
  3. XARELTO [Suspect]
     Active Substance: RIVAROXABAN
     Indication: CEREBROVASCULAR ACCIDENT PROPHYLAXIS
     Dosage: 10 MG AND 15 MG
     Route: 048
     Dates: start: 20140422, end: 20170327

REACTIONS (4)
  - Underdose [Unknown]
  - Epistaxis [Unknown]
  - Haemorrhoidal haemorrhage [Unknown]
  - Off label use [Unknown]

NARRATIVE: CASE EVENT DATE: 201508
